FAERS Safety Report 14764113 (Version 2)
Quarter: 2018Q2

REPORT INFORMATION
  Report Type: Report from Study
  Country: None (occurrence: CH)
  Receive Date: 20180416
  Receipt Date: 20180615
  Transmission Date: 20180711
  Serious: Yes (Other)
  Sender: FDA-Public Use
  Company Number: CH-ABBVIE-18P-151-2316380-00

PATIENT
  Sex: Male

DRUGS (1)
  1. VENETOCLAX. [Suspect]
     Active Substance: VENETOCLAX
     Indication: CHRONIC LYMPHOCYTIC LEUKAEMIA
     Route: 048
     Dates: end: 20180327

REACTIONS (1)
  - Richter^s syndrome [Unknown]

NARRATIVE: CASE EVENT DATE: 2018
